FAERS Safety Report 19892070 (Version 1)
Quarter: 2021Q3

REPORT INFORMATION
  Report Type: Spontaneous
  Country: US (occurrence: US)
  Receive Date: 20210929
  Receipt Date: 20210929
  Transmission Date: 20211014
  Serious: Yes (Other)
  Sender: FDA-Public Use
  Company Number: US-SUN PHARMACEUTICAL INDUSTRIES LTD-2021R1-312129

PATIENT
  Age: 9 Year
  Sex: Female

DRUGS (2)
  1. QUETIAPINE. [Suspect]
     Active Substance: QUETIAPINE
     Indication: PARASOMNIA
     Dosage: 200 MG
     Route: 065
  2. TOPIRAMATE. [Concomitant]
     Active Substance: TOPIRAMATE
     Indication: PARASOMNIA
     Dosage: UNK
     Route: 065

REACTIONS (2)
  - Sleep-related eating disorder [Unknown]
  - Somnambulism [Not Recovered/Not Resolved]
